FAERS Safety Report 8719459 (Version 2)
Quarter: 2012Q4

REPORT INFORMATION
  Report Type: 
  Country: US (occurrence: US)
  Receive Date: 20120813
  Receipt Date: 20121005
  Transmission Date: 20130627
  Serious: Yes (Other)
  Sender: FDA-Public Use
  Company Number: US-ELI_LILLY_AND_COMPANY-US201208001462

PATIENT
  Age: 57 Year
  Sex: Female
  Weight: 58.96 kg

DRUGS (12)
  1. CYMBALTA [Suspect]
     Indication: FIBROMYALGIA
     Dosage: 30 mg, qd
     Route: 048
     Dates: start: 20120630, end: 20120707
  2. CYMBALTA [Suspect]
     Dosage: 30 mg, qd
     Route: 048
     Dates: start: 20120815, end: 20120822
  3. CYMBALTA [Suspect]
     Dosage: 60 mg, unknown
     Route: 048
     Dates: start: 20120822, end: 20120906
  4. CEPHALEXIN MONOHYDRATE [Suspect]
  5. LORTAB [Concomitant]
  6. SOMA [Concomitant]
  7. LIPITOR [Concomitant]
  8. LISINOPRIL AND HYDROCHLOROTHIAZIDE [Concomitant]
  9. ESTRACE [Concomitant]
  10. PROPRANOLOL [Concomitant]
  11. VOLTAREN EMULGEL [Concomitant]
  12. KLONOPIN [Concomitant]

REACTIONS (12)
  - Dermatitis bullous [Recovered/Resolved]
  - Fatigue [Unknown]
  - Headache [Unknown]
  - Pruritus [Unknown]
  - Hyperhidrosis [Unknown]
  - Irritability [Unknown]
  - Dysphoria [Unknown]
  - Muscle spasms [Unknown]
  - Stomatitis [Unknown]
  - Hypothyroidism [Unknown]
  - Hormone level abnormal [Unknown]
  - Hypersensitivity [Unknown]
